FAERS Safety Report 8684426 (Version 2)
Quarter: 2012Q4

REPORT INFORMATION
  Report Type: 
  Country: US (occurrence: US)
  Receive Date: 20120726
  Receipt Date: 20121008
  Transmission Date: 20130627
  Serious: Yes (Other)
  Sender: FDA-Public Use
  Company Number: US-ROCHE-782663

PATIENT
  Age: 16 Year
  Sex: Male
  Weight: 56.75 kg

DRUGS (9)
  1. ACCUTANE [Suspect]
     Indication: ACNE
     Route: 065
     Dates: start: 200310, end: 200404
  2. ACCUTANE [Suspect]
     Route: 065
     Dates: start: 20050922, end: 20060222
  3. AMNESTEEM [Suspect]
     Indication: PRODUCT USED FOR UNKNOWN INDICATION
     Route: 065
  4. AMNESTEEM [Suspect]
     Route: 065
     Dates: start: 2005, end: 2006
  5. ALBUTEROL [Concomitant]
  6. CLARINEX [Concomitant]
  7. CLEOCIN T [Concomitant]
  8. CLINDAMYCIN [Concomitant]
  9. TAZORAC [Concomitant]

REACTIONS (5)
  - Colitis ulcerative [Unknown]
  - Inflammatory bowel disease [Unknown]
  - Stress [Unknown]
  - Xerosis [Unknown]
  - Cheilitis [Unknown]
